FAERS Safety Report 22644547 (Version 1)
Quarter: 2023Q2

REPORT INFORMATION
  Report Type: Spontaneous
  Country: IT (occurrence: IT)
  Receive Date: 20230627
  Receipt Date: 20230627
  Transmission Date: 20230722
  Serious: Yes (Other)
  Sender: FDA-Public Use
  Company Number: None

PATIENT
  Age: 90 Year
  Sex: Female

DRUGS (6)
  1. QUETIAPINE FUMARATE [Suspect]
     Active Substance: QUETIAPINE FUMARATE
     Indication: Psychotic disorder
     Dosage: QUETIAPINE 50 MG 1 TABLET IN THE MORNING, 1 IN THE EVENING
  2. ESOMEPRAZOLE [Concomitant]
     Active Substance: ESOMEPRAZOLE
     Indication: Gastritis prophylaxis
     Dosage: 20 MG
  3. ASPIRIN DL-LYSINE [Concomitant]
     Active Substance: ASPIRIN DL-LYSINE
     Indication: Thrombosis prophylaxis
     Dosage: 160 MG ORAL POWDER IN SACHET
  4. FOSINOPRIL\HYDROCHLOROTHIAZIDE [Concomitant]
     Active Substance: FOSINOPRIL\HYDROCHLOROTHIAZIDE
     Indication: Hypertension
     Dosage: 20/12.5 MG
  5. FUROSEMIDE [Concomitant]
     Active Substance: FUROSEMIDE
     Indication: Diuretic therapy
     Dosage: 12.5 MG
  6. TAPENTADOL [Concomitant]
     Active Substance: TAPENTADOL
     Indication: Pain
     Dosage: 100 MG* 2/DAY

REACTIONS (2)
  - Sopor [Recovered/Resolved]
  - Loss of consciousness [Recovered/Resolved]

NARRATIVE: CASE EVENT DATE: 20230514
